FAERS Safety Report 13203675 (Version 2)
Quarter: 2017Q1

REPORT INFORMATION
  Report Type: Spontaneous
  Country: US (occurrence: US)
  Receive Date: 20170209
  Receipt Date: 20170301
  Transmission Date: 20170428
  Serious: No
  Sender: FDA-Public Use
  Company Number: US-009507513-1701USA011696

PATIENT
  Age: 28 Year
  Sex: Female
  Weight: 83.9 kg

DRUGS (3)
  1. NEXPLANON [Suspect]
     Active Substance: ETONOGESTREL
     Indication: CONTRACEPTION
     Dosage: 1 ROD/3 YEARS
     Route: 059
     Dates: start: 201301, end: 201601
  2. ZYRTEC [Concomitant]
     Active Substance: CETIRIZINE HYDROCHLORIDE
     Dosage: UNK
  3. NEXPLANON [Suspect]
     Active Substance: ETONOGESTREL
     Dosage: 1 ROD/3 YEARS
     Route: 059
     Dates: start: 201601

REACTIONS (5)
  - Increased appetite [Not Recovered/Not Resolved]
  - Acne [Not Recovered/Not Resolved]
  - Menstruation normal [Unknown]
  - Scar [Not Recovered/Not Resolved]
  - Weight increased [Not Recovered/Not Resolved]
